FAERS Safety Report 6515743-3 (Version None)
Quarter: 2009Q4

REPORT INFORMATION
  Report Type: 
  Country: None (occurrence: None)
  Receive Date: 20091223
  Receipt Date: 20091217
  Transmission Date: 20100525
  Serious: Yes (Other)
  Sender: FDA-Public Use
  Company Number: US-RB-027167-09

PATIENT
  Age: 77 Year
  Sex: Male

DRUGS (2)
  1. MUCINEX DM [Suspect]
     Indication: SINUS DISORDER
     Route: 048
     Dates: start: 20091210
  2. MUCINEX DM [Suspect]
     Indication: BRONCHITIS
     Route: 048
     Dates: start: 20091210

REACTIONS (1)
  - HEART RATE INCREASED [None]
